FAERS Safety Report 19515650 (Version 1)
Quarter: 2021Q3

REPORT INFORMATION
  Report Type: Other
  Country: US (occurrence: US)
  Receive Date: 20210709
  Receipt Date: 20210709
  Transmission Date: 20211014
  Serious: Yes (Hospitalization)
  Sender: FDA-Public Use
  Company Number: US-NEUROCRINE BIOSCIENCES INC.-2021NBI03640

PATIENT

DRUGS (11)
  1. ONGENTYS [Suspect]
     Active Substance: OPICAPONE
     Indication: PARKINSON^S DISEASE
     Dosage: 50 MILLIGRAM, QHS
     Route: 048
     Dates: start: 202106
  2. VITAMIN C [Concomitant]
     Active Substance: ASCORBIC ACID
     Dosage: UNK
  3. LEXAPRO [Concomitant]
     Active Substance: ESCITALOPRAM OXALATE
     Dosage: UNK
  4. LEVOTHYROXINE SODIUM. [Concomitant]
     Active Substance: LEVOTHYROXINE SODIUM
     Dosage: UNK
  5. CAL/MAG [Concomitant]
     Dosage: UNK
  6. VITAMIN D [Concomitant]
     Active Substance: VITAMIN D NOS
     Dosage: UNK
  7. CARBIDOPA/LEVODOPA [Concomitant]
     Active Substance: CARBIDOPA\LEVODOPA
     Dosage: UNK
  8. IMATINIB MESYLATE. [Concomitant]
     Active Substance: IMATINIB MESYLATE
     Dosage: UNK
  9. LORAZEPAM. [Concomitant]
     Active Substance: LORAZEPAM
     Dosage: UNK
  10. DAILY VITAMINS [Concomitant]
     Active Substance: VITAMINS
     Dosage: UNK
  11. LUTEIN [Concomitant]
     Active Substance: LUTEIN
     Dosage: UNK

REACTIONS (4)
  - Headache [Unknown]
  - Dyskinesia [Unknown]
  - Dizziness [Unknown]
  - Nausea [Unknown]
